FAERS Safety Report 4844067-5 (Version None)
Quarter: 2005Q4

REPORT INFORMATION
  Report Type: 
  Country: None (occurrence: None)
  Receive Date: 20051202
  Receipt Date: 20051122
  Transmission Date: 20060501
  Serious: Yes (Hospitalization)
  Sender: FDA-Public Use
  Company Number: FR-ROCHE-426109

PATIENT
  Age: 49 Year
  Sex: Female

DRUGS (2)
  1. CYMEVAN [Suspect]
     Indication: DRUG USE FOR UNKNOWN INDICATION
     Dosage: FORM: LYOPHILISED. DOSAGE REGIMEN REPORTED AS 1 DOSE EVERY DAY
     Route: 042
     Dates: start: 20050928
  2. SPASFON-LYOC [Suspect]
     Indication: DRUG USE FOR UNKNOWN INDICATION
     Dosage: FORM: LYOPHILISED
     Route: 048
     Dates: start: 20050928, end: 20051015

REACTIONS (2)
  - BONE PAIN [None]
  - PYREXIA [None]
